FAERS Safety Report 5387293-1 (Version None)
Quarter: 2007Q3

REPORT INFORMATION
  Report Type: 
  Country: None (occurrence: None)
  Receive Date: 20070716
  Receipt Date: 20070706
  Transmission Date: 20080115
  Serious: Yes (Other)
  Sender: FDA-Public Use
  Company Number: PHEH2007US06540

PATIENT
  Age: 64 Year
  Sex: Male

DRUGS (17)
  1. ZOMETA [Suspect]
     Indication: METASTASES TO BONE
     Dosage: 4 MG EVERY FOUR WEEKS
     Dates: start: 20060213, end: 20070308
  2. DITROPAN XL [Concomitant]
     Dosage: 5 MG, QD
     Route: 048
  3. LUPRON [Concomitant]
     Dosage: 1 MG, UNK
     Route: 058
  4. LISINOPRIL [Concomitant]
     Dosage: 2.5 MG, QD
     Route: 048
  5. LIPITOR [Concomitant]
     Dosage: 10 MG, QD
     Route: 048
  6. ALTACE [Concomitant]
     Dosage: 1.25 MG, QD
     Route: 048
  7. TYLENOL [Concomitant]
     Dosage: 325 MG, PRN
  8. PROCHLORPERAZINE MALEATE [Concomitant]
     Indication: NAUSEA
     Dosage: 10 MG, PRN
  9. DEXAMETHASONE 0.5MG TAB [Concomitant]
     Dosage: 4 MG, PRN
     Route: 048
  10. TAGAMET [Concomitant]
     Dosage: 300 MG, QD
     Route: 048
  11. LEVOTHYROXINE SODIUM [Concomitant]
     Dosage: 0.05 MG, QD
     Route: 048
  12. AMARYL [Concomitant]
     Dosage: 1 MG, QD
     Route: 048
  13. NEXIUM [Concomitant]
     Dosage: 40 MG, QD
     Route: 048
  14. METFORMIN HCL [Concomitant]
     Dosage: 500 MG, QD
     Route: 048
  15. GLUCOSAMINE W/CHONDROITIN [Concomitant]
     Route: 048
  16. PROTONIX [Concomitant]
     Dosage: 40 MG, BID
     Route: 048
  17. TAXOTERE [Concomitant]
     Dosage: UNK, UNK
     Dates: end: 20061201

REACTIONS (13)
  - ARTHRALGIA [None]
  - BONE DISORDER [None]
  - BONE LESION [None]
  - DENTAL CARE [None]
  - DENTAL CARIES [None]
  - HAEMATOCRIT DECREASED [None]
  - HAEMOGLOBIN DECREASED [None]
  - ORAL DISORDER [None]
  - OSTEOARTHRITIS [None]
  - OSTEONECROSIS [None]
  - PAIN IN JAW [None]
  - PROSTATIC SPECIFIC ANTIGEN INCREASED [None]
  - SLEEP APNOEA SYNDROME [None]
